FAERS Safety Report 5479345-2 (Version None)
Quarter: 2007Q4

REPORT INFORMATION
  Report Type: 
  Country: None (occurrence: None)
  Receive Date: 20071003
  Receipt Date: 20071003
  Transmission Date: 20080405
  Serious: Yes (Hospitalization)
  Sender: FDA-Public Use
  Company Number: None

PATIENT
  Age: 52 Year
  Sex: Male

DRUGS (3)
  1. NAFCILLIN SODIUM [Suspect]
     Indication: BACTERAEMIA
     Dosage: 2GM OTHER IV
     Route: 042
     Dates: start: 20070915, end: 20070918
  2. NAFCILLIN SODIUM [Suspect]
     Indication: STAPHYLOCOCCAL INFECTION
     Dosage: 2GM OTHER IV
     Route: 042
     Dates: start: 20070915, end: 20070918
  3. IODIXANOL [Suspect]
     Indication: CATHETERISATION CARDIAC
     Dosage: 100 ONCE IV
     Route: 042
     Dates: start: 20070912, end: 20070912

REACTIONS (2)
  - CONTRAST MEDIA REACTION [None]
  - RENAL FAILURE ACUTE [None]
